FAERS Safety Report 10072703 (Version 1)
Quarter: 2014Q2

REPORT INFORMATION
  Report Type: Spontaneous
  Country: US (occurrence: US)
  Receive Date: 20140411
  Receipt Date: 20140411
  Transmission Date: 20141212
  Serious: No
  Sender: FDA-Public Use
  Company Number: US-PFIZER INC-2014099724

PATIENT
  Age: 64 Year
  Sex: Male
  Weight: 88.44 kg

DRUGS (2)
  1. NEURONTIN [Suspect]
     Indication: NEUROPATHY PERIPHERAL
     Dosage: 900 MG, 3X/DAY
     Dates: start: 2005
  2. SPIRIVA [Concomitant]
     Indication: CHRONIC OBSTRUCTIVE PULMONARY DISEASE
     Dosage: UNK, DAILY

REACTIONS (1)
  - Drug ineffective [Unknown]
